FAERS Safety Report 14695387 (Version 1)
Quarter: 2018Q1

REPORT INFORMATION
  Report Type: Report from Study
  Country: US (occurrence: US)
  Receive Date: 20180329
  Receipt Date: 20180329
  Transmission Date: 20180509
  Serious: Yes (Hospitalization)
  Sender: FDA-Public Use
  Company Number: US-VIFOR (INTERNATIONAL) INC.-VIT-2017-05569

PATIENT
  Sex: Female
  Weight: 167.07 kg

DRUGS (13)
  1. ACETYLSALICYLIC ACID [Concomitant]
     Active Substance: ASPIRIN
     Dates: start: 20170414
  2. VELTASSA [Suspect]
     Active Substance: PATIROMER
     Indication: LIMB DISCOMFORT
  3. VELTASSA [Suspect]
     Active Substance: PATIROMER
     Route: 048
     Dates: start: 20170427
  4. CEFALEXIN [Concomitant]
     Active Substance: CEPHALEXIN
     Dates: start: 20170414
  5. FUROSEMIDE. [Concomitant]
     Active Substance: FUROSEMIDE
     Dates: start: 20170414
  6. HYDROXYZINE HYDROCHLORIDE. [Concomitant]
     Active Substance: HYDROXYZINE HYDROCHLORIDE
     Dates: start: 20170414
  7. LACTULOSE. [Concomitant]
     Active Substance: LACTULOSE
     Dosage: 10 GRAM/15
     Dates: start: 20170414
  8. VELTASSA [Suspect]
     Active Substance: PATIROMER
     Indication: HYPERKALAEMIA
     Route: 048
     Dates: start: 20170330
  9. LOVASTATIN. [Concomitant]
     Active Substance: LOVASTATIN
     Dates: start: 20170414
  10. NOVOLIN R [Concomitant]
     Active Substance: INSULIN HUMAN
     Dates: start: 20170414
  11. FERROUS SULFATE. [Concomitant]
     Active Substance: FERROUS SULFATE
     Dosage: 220/5 ML
     Dates: start: 20170414
  12. SODIUM BICARBONATE. [Concomitant]
     Active Substance: SODIUM BICARBONATE
     Dates: start: 20170414
  13. LORAZEPAM. [Concomitant]
     Active Substance: LORAZEPAM
     Dates: start: 20170414

REACTIONS (4)
  - Dizziness [Not Recovered/Not Resolved]
  - Off label use [Unknown]
  - Limb discomfort [Not Recovered/Not Resolved]
  - Therapeutic response unexpected [Unknown]

NARRATIVE: CASE EVENT DATE: 2017
